FAERS Safety Report 10748386 (Version 1)
Quarter: 2015Q1

REPORT INFORMATION
  Report Type: Spontaneous
  Country: JP (occurrence: JP)
  Receive Date: 20150129
  Receipt Date: 20150129
  Transmission Date: 20150721
  Serious: Yes (Hospitalization, Other)
  Sender: FDA-Public Use
  Company Number: JP-TEVA-536520ISR

PATIENT
  Sex: Male
  Weight: 36.8 kg

DRUGS (5)
  1. PREDNISOLONE. [Suspect]
     Active Substance: PREDNISOLONE
     Indication: MYASTHENIA GRAVIS
     Dosage: 3.75 MILLIGRAM DAILY; RECEIVING 3.75MG/D AT 13Y OF AGE; INCREASED TO 30MG/D
     Route: 048
  2. METHYLPREDNISOLONE. [Suspect]
     Active Substance: METHYLPREDNISOLONE
     Dosage: 22 MG/KG DAILY;
  3. METHYLPREDNISOLONE. [Suspect]
     Active Substance: METHYLPREDNISOLONE
     Indication: MYASTHENIA GRAVIS
     Dosage: 20 MG/KG DAILY; SHORT COURSES OF PULSE THERAPY 20MG/KG/D FOR 3D
     Route: 065
  4. PREDNISOLONE. [Suspect]
     Active Substance: PREDNISOLONE
     Indication: MYASTHENIA GRAVIS
     Route: 048
  5. PREDNISOLONE. [Suspect]
     Active Substance: PREDNISOLONE
     Indication: MYASTHENIA GRAVIS
     Dosage: 30 MILLIGRAM DAILY;
     Route: 048

REACTIONS (2)
  - Osteoporosis [Unknown]
  - Failure to thrive [Unknown]
